FAERS Safety Report 25788083 (Version 2)
Quarter: 2025Q3

REPORT INFORMATION
  Report Type: Spontaneous
  Country: US (occurrence: US)
  Receive Date: 20250910
  Receipt Date: 20250926
  Transmission Date: 20251020
  Serious: Yes (Other)
  Sender: BIOMARIN
  Company Number: US-BIOMARINAP-US-2025-168621

PATIENT
  Sex: Male

DRUGS (5)
  1. PALYNZIQ [Suspect]
     Active Substance: PEGVALIASE-PQPZ
     Indication: Phenylketonuria
     Dosage: 20 MILLIGRAM, QD
  2. PALYNZIQ [Suspect]
     Active Substance: PEGVALIASE-PQPZ
  3. BUPROPION [Concomitant]
     Active Substance: BUPROPION
     Indication: Product used for unknown indication
     Dosage: 300 MILLIGRAM, QD
     Dates: start: 20230918
  4. FAMOTIDINE [Concomitant]
     Active Substance: FAMOTIDINE
     Indication: Premedication
     Dosage: 40 MILLIGRAM, QD
  5. CETIRIZINE [Concomitant]
     Active Substance: CETIRIZINE HYDROCHLORIDE
     Indication: Premedication
     Dosage: 10 MILLIGRAM, QD
     Dates: start: 2022

REACTIONS (5)
  - Panic attack [Recovered/Resolved]
  - Syncope [Recovered/Resolved]
  - Flushing [Recovered/Resolved]
  - Asthenia [Unknown]
  - Vomiting [Recovered/Resolved]

NARRATIVE: CASE EVENT DATE: 20250906
